FAERS Safety Report 14113210 (Version 2)
Quarter: 2017Q4

REPORT INFORMATION
  Report Type: Spontaneous
  Country: JP (occurrence: JP)
  Receive Date: 20171023
  Receipt Date: 20171031
  Transmission Date: 20180321
  Serious: Yes (Hospitalization, Other)
  Sender: FDA-Public Use
  Company Number: PHJP2017JP031352

PATIENT
  Age: 88 Year
  Sex: Female

DRUGS (6)
  1. TEGRETOL [Suspect]
     Active Substance: CARBAMAZEPINE
     Dosage: 150 MG, BID
     Route: 048
     Dates: start: 20170629
  2. RIVASTACH [Suspect]
     Active Substance: RIVASTIGMINE
     Indication: DEMENTIA
     Dosage: PATCH 2.5 (CM2), UNK
     Route: 062
  3. TEGRETOL [Suspect]
     Active Substance: CARBAMAZEPINE
     Dosage: 100 MG, BID
     Route: 048
     Dates: start: 20170326, end: 20170628
  4. RIVASTACH [Suspect]
     Active Substance: RIVASTIGMINE
     Dosage: 9 MG, UNK
     Route: 062
  5. TEGRETOL [Suspect]
     Active Substance: CARBAMAZEPINE
     Dosage: 200 MG, UNK
     Route: 048
  6. TEGRETOL [Suspect]
     Active Substance: CARBAMAZEPINE
     Indication: HEADACHE
     Dosage: 100 MG, PRN
     Route: 048
     Dates: start: 20170213, end: 20170325

REACTIONS (10)
  - Blood sodium decreased [Unknown]
  - Pain [Unknown]
  - Headache [Unknown]
  - Trigeminal neuralgia [Unknown]
  - Disease progression [Unknown]
  - Renal impairment [Unknown]
  - Pruritus [Unknown]
  - Drug effect incomplete [Unknown]
  - Blood creatinine increased [Unknown]
  - Dementia [Unknown]

NARRATIVE: CASE EVENT DATE: 20170214
